FAERS Safety Report 8288043-1 (Version None)
Quarter: 2012Q2

REPORT INFORMATION
  Report Type: 
  Country: None (occurrence: None)
  Receive Date: 20120416
  Receipt Date: 20120405
  Transmission Date: 20120825
  Serious: Yes (Hospitalization)
  Sender: FDA-Public Use
  Company Number: DE-GLAXOSMITHKLINE-D0074654A

PATIENT
  Sex: Male
  Weight: 81 kg

DRUGS (6)
  1. DIPYRONE TAB [Concomitant]
     Dosage: 20DROP AS REQUIRED
     Route: 048
  2. ARIXTRA [Suspect]
     Indication: THROMBOSIS PROPHYLAXIS
     Dosage: 2.5MG PER DAY
     Route: 058
     Dates: start: 20111214, end: 20111220
  3. DICLOFENAC [Concomitant]
     Dosage: 50MG THREE TIMES PER DAY
     Route: 048
     Dates: start: 20111215
  4. PANTOPRAZOLE [Concomitant]
     Dosage: 20MG PER DAY
     Route: 048
  5. TRAMAGIT [Concomitant]
     Dosage: 100MG TWICE PER DAY
     Route: 048
  6. MAGNESIUM DIASPORAL [Concomitant]
     Route: 048

REACTIONS (1)
  - POST PROCEDURAL PULMONARY EMBOLISM [None]
